FAERS Safety Report 8274963-0 (Version None)
Quarter: 2012Q1

REPORT INFORMATION
  Report Type: 
  Country: None (occurrence: None)
  Receive Date: 20120309
  Receipt Date: 20111206
  Transmission Date: 20120608
  Serious: Yes (Other)
  Sender: FDA-Public Use
  Company Number: TH-2011-00504

PATIENT
  Age: 54 Year
  Sex: Male
  Weight: 80.5 kg

DRUGS (9)
  1. TESAMORELIN/PLACEBO [Suspect]
     Dosage: 2 MG, QD, SUBCUTANEOUS
     Route: 058
     Dates: start: 20110908, end: 20111205
  2. LISINOPRIL [Concomitant]
  3. AMLODIPINE [Concomitant]
  4. NEVIRAPINE [Concomitant]
  5. TESTOSTERONE [Concomitant]
  6. TRUVADA [Concomitant]
  7. LOVAZA/ OMEGA [Concomitant]
  8. PRAVASTATIN [Concomitant]
  9. ASPIRIN [Concomitant]

REACTIONS (1)
  - BASAL CELL CARCINOMA [None]
